FAERS Safety Report 12872625 (Version 1)
Quarter: 2016Q4

REPORT INFORMATION
  Report Type: Spontaneous
  Country: ES (occurrence: ES)
  Receive Date: 20161021
  Receipt Date: 20161021
  Transmission Date: 20170207
  Serious: Yes (Other)
  Sender: FDA-Public Use
  Company Number: ES-ACCORD-045003

PATIENT
  Age: 66 Year
  Sex: Female

DRUGS (1)
  1. DOCETAXEL ACCORD [Suspect]
     Active Substance: DOCETAXEL
     Indication: BREAST CANCER
     Dosage: STRENGTH: 160 MG/8 ML, 190 MG C/21 DAYS
     Route: 042
     Dates: start: 20160729, end: 20160729

REACTIONS (3)
  - Abdominal distension [Recovered/Resolved]
  - Sense of oppression [Recovered/Resolved]
  - Flushing [Recovered/Resolved]

NARRATIVE: CASE EVENT DATE: 20160729
